FAERS Safety Report 6950419-X (Version None)
Quarter: 2010Q3

REPORT INFORMATION
  Report Type: 
  Country: None (occurrence: None)
  Receive Date: 20100828
  Receipt Date: 20100210
  Transmission Date: 20110219
  Serious: No
  Sender: FDA-Public Use
  Company Number: US-ABBOTT-10P-163-0626148-00

PATIENT
  Sex: Female
  Weight: 50.848 kg

DRUGS (2)
  1. NIASPAN [Suspect]
     Indication: BLOOD CHOLESTEROL INCREASED
     Dates: start: 20100101
  2. ATENOLOL [Concomitant]
     Indication: HYPERTENSION

REACTIONS (1)
  - EYELID OEDEMA [None]
